FAERS Safety Report 20069173 (Version 1)
Quarter: 2021Q4

REPORT INFORMATION
  Report Type: Spontaneous
  Country: ES (occurrence: ES)
  Receive Date: 20211115
  Receipt Date: 20211115
  Transmission Date: 20220303
  Serious: Yes (Hospitalization)
  Sender: FDA-Public Use
  Company Number: None

PATIENT
  Age: 52 Year
  Sex: Female

DRUGS (5)
  1. RINVOQ [Suspect]
     Active Substance: UPADACITINIB
     Indication: Arthritis
     Route: 048
     Dates: start: 20210618, end: 20210711
  2. OMEPRAZOL ALTER [Concomitant]
     Indication: Gastritis prophylaxis
     Route: 048
     Dates: start: 20190807
  3. BONVIVA [Concomitant]
     Active Substance: IBANDRONATE SODIUM
     Indication: Osteoporosis
     Route: 048
     Dates: start: 20160307, end: 20210711
  4. ARCOXIA [Concomitant]
     Active Substance: ETORICOXIB
     Indication: Arthritis
     Route: 048
     Dates: start: 20181126, end: 20210711
  5. PREDNISONE [Concomitant]
     Active Substance: PREDNISONE
     Indication: Arthritis
     Route: 048
     Dates: start: 20140818, end: 20210713

REACTIONS (1)
  - Meningitis aseptic [Recovered/Resolved]

NARRATIVE: CASE EVENT DATE: 20210625
